FAERS Safety Report 21573360 (Version 1)
Quarter: 2022Q4

REPORT INFORMATION
  Report Type: Spontaneous
  Country: IT (occurrence: IT)
  Receive Date: 20221109
  Receipt Date: 20221109
  Transmission Date: 20230113
  Serious: Yes (Life-Threatening, Hospitalization, Congenital Anomaly)
  Sender: FDA-Public Use
  Company Number: IT-SLATE RUN PHARMACEUTICALS-22IT001409

PATIENT

DRUGS (11)
  1. VANCOMYCIN HYDROCHLORIDE [Suspect]
     Active Substance: VANCOMYCIN HYDROCHLORIDE
     Indication: Maternal exposure during pregnancy
     Dosage: UNK
  2. ACETAMINOPHEN [Concomitant]
     Active Substance: ACETAMINOPHEN
     Indication: Maternal exposure during pregnancy
  3. ACETAMINOPHEN [Concomitant]
     Active Substance: ACETAMINOPHEN
     Indication: Maternal exposure during pregnancy
  4. ACETAMINOPHEN [Concomitant]
     Active Substance: ACETAMINOPHEN
     Indication: Maternal exposure during pregnancy
  5. OXYGEN [Concomitant]
     Active Substance: OXYGEN
     Indication: Maternal exposure during pregnancy
     Dosage: 15 LITRE PER MIN
  6. OXYGEN [Concomitant]
     Active Substance: OXYGEN
     Dosage: 5 LITRE PER MIN
  7. ENOXAPARIN SODIUM [Concomitant]
     Active Substance: ENOXAPARIN SODIUM
     Indication: Maternal exposure during pregnancy
  8. CLARITHROMYCIN [Concomitant]
     Active Substance: CLARITHROMYCIN
     Indication: Maternal exposure during pregnancy
  9. CEFTRIAXONE [Concomitant]
     Active Substance: CEFTRIAXONE
     Indication: Maternal exposure during pregnancy
  10. COVID-19 CONVALESCENT PLASMA [Concomitant]
     Active Substance: COVID-19 CONVALESCENT PLASMA
     Indication: Maternal exposure during pregnancy
  11. MEROPENEM [Concomitant]
     Active Substance: MEROPENEM
     Indication: Maternal exposure during pregnancy

REACTIONS (7)
  - Neonatal respiratory failure [Recovering/Resolving]
  - Apgar score low [Recovering/Resolving]
  - Premature baby [Recovering/Resolving]
  - Ultrasound scan abnormal [Recovering/Resolving]
  - Ventricular septal defect [Recovering/Resolving]
  - Pulmonary artery dilatation [Unknown]
  - Foetal exposure during pregnancy [Recovered/Resolved]
